FAERS Safety Report 10583368 (Version 1)
Quarter: 2014Q4

REPORT INFORMATION
  Report Type: Spontaneous
  Country: FR (occurrence: None)
  Receive Date: 20141112
  Receipt Date: 20141112
  Transmission Date: 20150529
  Serious: Yes (Death)
  Sender: FDA-Public Use
  Company Number: FK201405057

PATIENT
  Age: 65 Year
  Sex: Female

DRUGS (6)
  1. PROPOFOL 1% FRESENIUS (PROPOFOL) (PROPOFOL) [Suspect]
     Active Substance: PROPOFOL
     Indication: INDUCTION OF ANAESTHESIA
     Dosage: UNTIL GW 30?
     Route: 042
     Dates: start: 20140822, end: 20140822
  2. SEVORANE [Suspect]
     Active Substance: SEVOFLURANE
     Indication: PRODUCT USED FOR UNKNOWN INDICATION
     Route: 055
     Dates: start: 20140822, end: 20140822
  3. KETAMINE (KETAMINE) (KETAMINE) [Suspect]
     Active Substance: KETAMINE
     Indication: PRODUCT USED FOR UNKNOWN INDICATION
     Route: 042
     Dates: start: 20140822, end: 20140822
  4. CEFUROXIM FRESENIUS 1500 MG (CEFUROXIME SODIUM) (CEFUROXIME SODIUM) [Suspect]
     Active Substance: CEFUROXIME
     Indication: PRODUCT USED FOR UNKNOWN INDICATION
     Route: 042
     Dates: start: 20140822, end: 20140822
  5. ULTIVA [Suspect]
     Active Substance: REMIFENTANIL HYDROCHLORIDE
     Indication: PRODUCT USED FOR UNKNOWN INDICATION
     Route: 042
     Dates: start: 20140822, end: 20140822
  6. MIVACRON [Suspect]
     Active Substance: MIVACURIUM CHLORIDE
     Indication: PRODUCT USED FOR UNKNOWN INDICATION
     Route: 042
     Dates: start: 20140822, end: 20140822

REACTIONS (7)
  - Oedema [None]
  - Erythema [None]
  - Blood pressure decreased [None]
  - Electrocardiogram QRS complex abnormal [None]
  - Mydriasis [None]
  - Tachycardia [None]
  - Circulatory collapse [None]

NARRATIVE: CASE EVENT DATE: 20140822
